FAERS Safety Report 8932309 (Version 2)
Quarter: 2012Q4

REPORT INFORMATION
  Report Type: 
  Country: GR (occurrence: GR)
  Receive Date: 20121128
  Receipt Date: 20121210
  Transmission Date: 20130627
  Serious: Yes (Other)
  Sender: FDA-Public Use
  Company Number: GR-JNJFOC-20121010762

PATIENT
  Age: 80 Year
  Sex: Male

DRUGS (3)
  1. STELARA [Suspect]
     Indication: PSORIASIS
     Route: 058
     Dates: start: 2012
  2. STELARA [Suspect]
     Indication: PSORIASIS
     Route: 058
     Dates: start: 2012
  3. ISONIAZID [Concomitant]
     Indication: LATENT TUBERCULOSIS
     Route: 065
     Dates: start: 2012

REACTIONS (2)
  - Erythrodermic psoriasis [Unknown]
  - Pyrexia [Unknown]
